FAERS Safety Report 15267481 (Version 4)
Quarter: 2018Q4

REPORT INFORMATION
  Report Type: Spontaneous
  Country: US (occurrence: US)
  Receive Date: 20180811
  Receipt Date: 20181225
  Transmission Date: 20190204
  Serious: No
  Sender: FDA-Public Use
  Company Number: US-BRISTOL-MYERS SQUIBB COMPANY-BMS-2018-074879

PATIENT
  Sex: Female
  Weight: 85.27 kg

DRUGS (1)
  1. ORENCIA [Suspect]
     Active Substance: ABATACEPT
     Indication: RHEUMATOID ARTHRITIS
     Dosage: 125 MG, QWK
     Route: 058
     Dates: start: 201807

REACTIONS (8)
  - Malaise [Unknown]
  - Sinus disorder [Unknown]
  - Condition aggravated [Unknown]
  - Injection site erythema [Unknown]
  - Headache [Unknown]
  - Diarrhoea [Unknown]
  - Oropharyngeal pain [Unknown]
  - Contusion [Unknown]
